FAERS Safety Report 20499036 (Version 1)
Quarter: 2022Q1

REPORT INFORMATION
  Report Type: Spontaneous
  Country: CA (occurrence: CA)
  Receive Date: 20220222
  Receipt Date: 20220222
  Transmission Date: 20220424
  Serious: Yes (Other)
  Sender: FDA-Public Use
  Company Number: None

PATIENT
  Age: 6 Decade
  Sex: Male

DRUGS (2)
  1. AMLODIPINE [Suspect]
     Active Substance: AMLODIPINE BESYLATE
     Indication: Blood pressure abnormal
  2. ALTACE [Concomitant]
     Active Substance: RAMIPRIL

REACTIONS (6)
  - Blindness [Unknown]
  - Drug ineffective [Unknown]
  - Poor quality product administered [Unknown]
  - Product dispensing error [Unknown]
  - Product label issue [Unknown]
  - Product taste abnormal [Unknown]
